FAERS Safety Report 10415358 (Version 1)
Quarter: 2014Q3

REPORT INFORMATION
  Report Type: Spontaneous
  Country: US (occurrence: US)
  Receive Date: 20140828
  Receipt Date: 20140828
  Transmission Date: 20150326
  Serious: No
  Sender: FDA-Public Use
  Company Number: US-009507513-1405USA000738

PATIENT
  Sex: Male

DRUGS (3)
  1. DR. SCHOLLS ULTRA THIN CORN REMOVERS [Suspect]
     Active Substance: SALICYLIC ACID
     Indication: ILL-DEFINED DISORDER
     Dosage: UNK, UNKNOWN
     Route: 061
  2. DR. SCHOLLS ULTRA THIN CORN REMOVERS [Suspect]
     Active Substance: SALICYLIC ACID
     Indication: DISCOMFORT
  3. DR. SCHOLLS ULTRA THIN CORN REMOVERS [Suspect]
     Active Substance: SALICYLIC ACID
     Indication: PAIN

REACTIONS (1)
  - Skin exfoliation [Unknown]

NARRATIVE: CASE EVENT DATE: 20140420
